FAERS Safety Report 8432735-8 (Version None)
Quarter: 2012Q2

REPORT INFORMATION
  Report Type: 
  Country: None (occurrence: None)
  Receive Date: 20120323
  Receipt Date: 20110620
  Transmission Date: 20120825
  Serious: Yes (Hospitalization)
  Sender: FDA-Public Use
  Company Number: 163-21880-11060640

PATIENT
  Age: 92 Year
  Sex: Female

DRUGS (9)
  1. AMLODIPINE [Concomitant]
  2. CENTRUM SILVER (CENTRUM SILVER) [Concomitant]
  3. FOLIC ACID [Concomitant]
  4. ASPIRIN [Concomitant]
  5. COLACE (DOCUSATE SODIUM) [Concomitant]
  6. REVLIMID [Suspect]
     Indication: MULTIPLE MYELOMA
     Dosage: 5 MG, 1 IN 1 D, PO
     Route: 048
     Dates: start: 20110506
  7. SIMVASTATIN [Concomitant]
  8. SYNTHROID [Concomitant]
  9. BESY-BENAZEPRIL HCL (BENAZEPRIL) [Concomitant]

REACTIONS (3)
  - VOMITING [None]
  - ANAEMIA [None]
  - DIARRHOEA [None]
